FAERS Safety Report 24072923 (Version 1)
Quarter: 2024Q3

REPORT INFORMATION
  Report Type: Spontaneous
  Country: US (occurrence: US)
  Receive Date: 20240710
  Receipt Date: 20240710
  Transmission Date: 20241016
  Serious: No
  Sender: ROCHE
  Company Number: US-ROCHE-10000021080

PATIENT
  Age: 51 Year
  Sex: Female

DRUGS (2)
  1. XOLAIR [Suspect]
     Active Substance: OMALIZUMAB
     Indication: Chronic spontaneous urticaria
     Route: 058
     Dates: start: 20210404
  2. XOLAIR [Suspect]
     Active Substance: OMALIZUMAB
     Indication: Mast cell activation syndrome

REACTIONS (4)
  - Nasopharyngitis [Recovering/Resolving]
  - Cough [Recovering/Resolving]
  - Sneezing [Recovering/Resolving]
  - Headache [Recovering/Resolving]

NARRATIVE: CASE EVENT DATE: 20240626
